FAERS Safety Report 17236111 (Version 2)
Quarter: 2020Q1

REPORT INFORMATION
  Report Type: Spontaneous
  Country: US (occurrence: US)
  Receive Date: 20200106
  Receipt Date: 20200327
  Transmission Date: 20200409
  Serious: Yes (Hospitalization)
  Sender: FDA-Public Use
  Company Number: US-GLAXOSMITHKLINE-US2020000407

PATIENT
  Age: 48 Year
  Sex: Male

DRUGS (1)
  1. BENLYSTA [Suspect]
     Active Substance: BELIMUMAB
     Indication: PRODUCT USED FOR UNKNOWN INDICATION
     Dosage: UNK UNK, WE
     Route: 065
     Dates: start: 20190128

REACTIONS (3)
  - Visual impairment [Not Recovered/Not Resolved]
  - Cardiac ablation [Unknown]
  - Heart rate increased [Recovered/Resolved with Sequelae]

NARRATIVE: CASE EVENT DATE: 2019
